FAERS Safety Report 6978763-0 (Version None)
Quarter: 2010Q3

REPORT INFORMATION
  Report Type: 
  Country: None (occurrence: None)
  Receive Date: 20100913
  Receipt Date: 20100909
  Transmission Date: 20110219
  Serious: Yes (Other)
  Sender: FDA-Public Use
  Company Number: AU-ROCHE-725975

PATIENT
  Sex: Female

DRUGS (1)
  1. PROXEN SR [Suspect]
     Indication: PRODUCT USED FOR UNKNOWN INDICATION
     Route: 048
     Dates: start: 20080915, end: 20080917

REACTIONS (2)
  - OPTIC NERVE DISORDER [None]
  - VITREOUS FLOATERS [None]
